FAERS Safety Report 21393368 (Version 1)
Quarter: 2022Q3

REPORT INFORMATION
  Report Type: Spontaneous
  Country: US (occurrence: US)
  Receive Date: 20220929
  Receipt Date: 20220929
  Transmission Date: 20221026
  Serious: No
  Sender: FDA-Public Use
  Company Number: US-ELI_LILLY_AND_COMPANY-US202209008402

PATIENT
  Sex: Male

DRUGS (2)
  1. MOUNJARO [Suspect]
     Active Substance: TIRZEPATIDE
     Indication: Weight decreased
     Dosage: 10 MG, WEEKLY (1/W)
     Route: 058
     Dates: start: 202206
  2. MOUNJARO [Suspect]
     Active Substance: TIRZEPATIDE
     Dosage: 20 MG, WEEKLY (1/W)
     Route: 058

REACTIONS (4)
  - Off label use [Not Recovered/Not Resolved]
  - Prescribed overdose [Not Recovered/Not Resolved]
  - Product prescribing error [Recovered/Resolved]
  - Decreased appetite [Not Recovered/Not Resolved]
